FAERS Safety Report 19763255 (Version 2)
Quarter: 2021Q3

REPORT INFORMATION
  Report Type: Spontaneous
  Country: US (occurrence: US)
  Receive Date: 20210830
  Receipt Date: 20210930
  Transmission Date: 20211014
  Serious: Yes (Other)
  Sender: FDA-Public Use
  Company Number: US-ELI_LILLY_AND_COMPANY-US202108010047

PATIENT
  Age: 38 Year
  Sex: Female

DRUGS (2)
  1. TOPAMAX [Suspect]
     Active Substance: TOPIRAMATE
     Indication: PRODUCT USED FOR UNKNOWN INDICATION
     Dosage: UNK, UNKNOWN
     Route: 065
  2. EMGALITY [Suspect]
     Active Substance: GALCANEZUMAB-GNLM
     Indication: PRODUCT USED FOR UNKNOWN INDICATION
     Dosage: 120 MG, UNKNOWN
     Route: 065
     Dates: start: 20210420

REACTIONS (6)
  - Erythema [Unknown]
  - Urticaria [Unknown]
  - Angioedema [Unknown]
  - Paraesthesia [Unknown]
  - Injection site reaction [Unknown]
  - Underdose [Unknown]

NARRATIVE: CASE EVENT DATE: 20210420
